FAERS Safety Report 23048957 (Version 2)
Quarter: 2024Q1

REPORT INFORMATION
  Report Type: Spontaneous
  Country: FR (occurrence: FR)
  Receive Date: 20231010
  Receipt Date: 20240315
  Transmission Date: 20240410
  Serious: Yes (Hospitalization)
  Sender: FDA-Public Use
  Company Number: None

PATIENT
  Age: 82 Year
  Sex: Female
  Weight: 73 kg

DRUGS (3)
  1. FURADANTIN [Suspect]
     Active Substance: NITROFURANTOIN
     Indication: Cystitis
     Dosage: FURADANTINE
     Route: 048
     Dates: start: 20230911, end: 20230913
  2. PREGABALIN [Suspect]
     Active Substance: PREGABALIN
     Indication: Sciatica
     Dosage: PREGABALINE, 1-1-1 /D LONG TERM
     Route: 048
     Dates: end: 20230913
  3. ACETAMINOPHEN [Concomitant]
     Active Substance: ACETAMINOPHEN
     Indication: Product used for unknown indication
     Route: 065

REACTIONS (1)
  - Hepatic steatosis [Recovering/Resolving]

NARRATIVE: CASE EVENT DATE: 20230911
